FAERS Safety Report 9562748 (Version 1)
Quarter: 2013Q3

REPORT INFORMATION
  Report Type: Spontaneous
  Country: IT (occurrence: IT)
  Receive Date: 20130927
  Receipt Date: 20130927
  Transmission Date: 20140515
  Serious: Yes (Hospitalization)
  Sender: FDA-Public Use
  Company Number: IT-ACTAVIS-2013-16951

PATIENT
  Sex: 0

DRUGS (3)
  1. DIAZEPAM [Suspect]
     Indication: DEPRESSION
     Dosage: 20 ML, SINGLE
     Route: 048
     Dates: start: 20130623, end: 20130623
  2. CITALOPRAM [Suspect]
     Indication: DEPRESSION
     Dosage: 560 MG, SINGLE
     Route: 048
     Dates: start: 20130623, end: 20130623
  3. QUETIAPINE [Suspect]
     Indication: DEPRESSION
     Dosage: 4000 MG, SINGLE
     Route: 048
     Dates: start: 20130623, end: 20130623

REACTIONS (3)
  - Loss of consciousness [Recovering/Resolving]
  - Suicide attempt [Recovering/Resolving]
  - Sopor [Recovering/Resolving]
